FAERS Safety Report 21624999 (Version 3)
Quarter: 2023Q1

REPORT INFORMATION
  Report Type: Spontaneous
  Country: US (occurrence: US)
  Receive Date: 20221122
  Receipt Date: 20230105
  Transmission Date: 20230418
  Serious: Yes (Hospitalization)
  Sender: FDA-Public Use
  Company Number: US-AUROBINDO-AUR-APL-2022-049155

PATIENT
  Age: 63 Year
  Sex: Male
  Weight: 83.9 kg

DRUGS (5)
  1. TAMSULOSIN HYDROCHLORIDE [Suspect]
     Active Substance: TAMSULOSIN HYDROCHLORIDE
     Indication: Benign prostatic hyperplasia
     Dosage: 0.4 MILLIGRAM, EVERY OTHER DAY
     Route: 048
     Dates: start: 20220918
  2. TAMSULOSIN HYDROCHLORIDE [Suspect]
     Active Substance: TAMSULOSIN HYDROCHLORIDE
     Dosage: UNK (6TH DOSE)
     Route: 065
     Dates: start: 20220928
  3. TAMSULOSIN HYDROCHLORIDE [Suspect]
     Active Substance: TAMSULOSIN HYDROCHLORIDE
     Dosage: 0.4 MILLIGRAM (1 CAPSULE IN 3 DAYS) AS DIRECTED BY THE PHYSICIAN
     Route: 065
     Dates: start: 20221011
  4. .BETA.-SITOSTEROL [Suspect]
     Active Substance: .BETA.-SITOSTEROL
     Indication: Product used for unknown indication
     Dosage: UNK
     Route: 065
  5. PHYTOSTEROLS [Suspect]
     Active Substance: PHYTOSTEROLS
     Indication: Product used for unknown indication
     Dosage: UNK
     Route: 065

REACTIONS (5)
  - Dyspnoea [Recovering/Resolving]
  - Rhinitis [Unknown]
  - Sinusitis [Unknown]
  - Nasal congestion [Unknown]
  - Lacrimation increased [Unknown]

NARRATIVE: CASE EVENT DATE: 20220929
